FAERS Safety Report 7252391-4 (Version None)
Quarter: 2011Q1

REPORT INFORMATION
  Report Type: 
  Country: None (occurrence: None)
  Receive Date: 20110129
  Receipt Date: 20100428
  Transmission Date: 20110831
  Serious: No
  Sender: FDA-Public Use
  Company Number: US-ABBOTT-09P-163-0561228-00

PATIENT
  Sex: Male
  Weight: 97.61 kg

DRUGS (4)
  1. HUMIRA [Suspect]
     Indication: CROHN'S DISEASE
     Route: 058
     Dates: start: 20080801, end: 20100101
  2. CLONAZEPAM [Concomitant]
     Indication: PRODUCT USED FOR UNKNOWN INDICATION
  3. PAXIL [Concomitant]
     Indication: DEPRESSION
  4. REMERON [Concomitant]
     Indication: DECREASED APPETITE

REACTIONS (1)
  - HEADACHE [None]
